FAERS Safety Report 5777210-4 (Version None)
Quarter: 2008Q2

REPORT INFORMATION
  Report Type: 
  Country: None (occurrence: None)
  Receive Date: 20080618
  Receipt Date: 20080607
  Transmission Date: 20081010
  Serious: Yes (Hospitalization)
  Sender: FDA-Public Use
  Company Number: US-ELI_LILLY_AND_COMPANY-US200806001848

PATIENT
  Sex: Male
  Weight: 102.4 kg

DRUGS (8)
  1. BYETTA [Suspect]
     Indication: DIABETES MELLITUS
     Dosage: 5 UG, 2/D
     Route: 058
     Dates: start: 20080414, end: 20080601
  2. NEURONTIN [Concomitant]
     Indication: DIABETIC NEUROPATHY
     Dosage: 200 MG, EACH EVENING
     Route: 047
     Dates: end: 20080305
  3. NEURONTIN [Concomitant]
     Dosage: 300 MG, 3/D
     Route: 048
     Dates: start: 20080301, end: 20080101
  4. NEURONTIN [Concomitant]
     Dosage: 300 MG, 2/D
     Route: 048
     Dates: start: 20080101
  5. NEURONTIN [Concomitant]
     Dosage: 600 MG, EACH EVENING
     Route: 048
     Dates: start: 20080101
  6. GLUCOVANCE [Concomitant]
     Indication: DIABETES MELLITUS
     Dosage: UNK, 2/D
     Route: 048
     Dates: end: 20080101
  7. GLUCOVANCE [Concomitant]
     Dosage: UNK, EACH EVENING
     Route: 048
     Dates: start: 20080101, end: 20080602
  8. GLUCOVANCE [Concomitant]
     Dosage: UNK, EACH EVENING
     Route: 048
     Dates: start: 20080602

REACTIONS (7)
  - BLOOD GLUCOSE DECREASED [None]
  - BLOOD GLUCOSE INCREASED [None]
  - DIARRHOEA [None]
  - OEDEMA PERIPHERAL [None]
  - PULMONARY EMBOLISM [None]
  - THROMBOSIS [None]
  - TREMOR [None]
